FAERS Safety Report 6702263-6 (Version None)
Quarter: 2010Q2

REPORT INFORMATION
  Report Type: 
  Country: None (occurrence: None)
  Receive Date: 20100429
  Receipt Date: 20100422
  Transmission Date: 20101027
  Serious: Yes (Hospitalization)
  Sender: FDA-Public Use
  Company Number: US-ASTRAZENECA-2010SE17960

PATIENT
  Age: 13543 Day
  Sex: Female
  Weight: 77.6 kg

DRUGS (18)
  1. SYMBICORT [Suspect]
     Indication: ASTHMA
     Dosage: 160/4.5 UG, 2 PUFFS
     Route: 055
     Dates: start: 20090101
  2. SYMBICORT [Suspect]
     Indication: SEASONAL ALLERGY
     Dosage: 160/4.5 UG, 2 PUFFS
     Route: 055
     Dates: start: 20090101
  3. IODINE DYE [Suspect]
  4. PULMICORT [Concomitant]
     Route: 055
  5. SINGULAIR [Concomitant]
     Indication: ASTHMA
  6. BENTYL [Concomitant]
     Dosage: TID
  7. TRICOR [Concomitant]
  8. VARAPAMIL [Concomitant]
  9. HYDROCODONE BITARTRATE [Concomitant]
     Indication: MIGRAINE
  10. IMITREX [Concomitant]
     Indication: MIGRAINE
  11. PREVACID [Concomitant]
  12. COLESTIPOL HYDROCHLORIDE [Concomitant]
  13. THEOPHYLLINE [Concomitant]
  14. SUCRALATE [Concomitant]
     Dates: start: 20100401
  15. PREDNISONE [Concomitant]
     Indication: ASTHMA
     Dosage: PRN
  16. ADVAIR DISKUS 100/50 [Concomitant]
     Indication: ASTHMA
     Dates: start: 20090101
  17. ALBUTEROL VIA NEBULIZER [Concomitant]
  18. OXYGEN [Concomitant]

REACTIONS (1)
  - HYPERSENSITIVITY [None]
